FAERS Safety Report 7885255-3 (Version None)
Quarter: 2011Q4

REPORT INFORMATION
  Report Type: 
  Country: None (occurrence: None)
  Receive Date: 20111102
  Receipt Date: 20111026
  Transmission Date: 20120403
  Serious: Yes (Hospitalization)
  Sender: FDA-Public Use
  Company Number: FR-PFIZER INC-2011260407

PATIENT
  Age: 79 Year
  Sex: Female

DRUGS (4)
  1. XANAX [Suspect]
     Indication: ANXIETY
     Dosage: 0.125 MG, 2X/DAY (0.5 DF (0.25MG TABLET) TWICE DAILY)
     Route: 048
     Dates: start: 20100101
  2. ATHYMIL [Suspect]
     Indication: DEPRESSION
     Dosage: 30 MG, 1X/DAY
     Route: 048
     Dates: start: 20110117, end: 20110315
  3. EXELON [Suspect]
     Indication: DEMENTIA WITH LEWY BODIES
     Dosage: UNK
     Route: 003
     Dates: start: 20110101
  4. MODOPAR [Suspect]
     Indication: PARKINSONISM
     Dosage: 100/25 MG, 6 TIMES DAILY
     Route: 048
     Dates: start: 20110215

REACTIONS (2)
  - FEBRILE NEUTROPENIA [None]
  - LEUKOPENIA [None]
